FAERS Safety Report 7853863-1 (Version None)
Quarter: 2011Q4

REPORT INFORMATION
  Report Type: 
  Country: None (occurrence: None)
  Receive Date: 20111026
  Receipt Date: 20111014
  Transmission Date: 20120403
  Serious: Yes (Hospitalization)
  Sender: FDA-Public Use
  Company Number: US-BAYER-2011-102426

PATIENT
  Age: 22 Year
  Sex: Female
  Weight: 56.689 kg

DRUGS (2)
  1. YAZ [Suspect]
     Indication: CONTRACEPTION
     Dosage: UNK
     Route: 048
     Dates: start: 20060301, end: 20091201
  2. MOTRIN [Concomitant]
     Dosage: UNK
     Dates: start: 20000101

REACTIONS (1)
  - GALLBLADDER DISORDER [None]
